FAERS Safety Report 4336498-7 (Version None)
Quarter: 2004Q2

REPORT INFORMATION
  Report Type: 
  Country: None (occurrence: None)
  Receive Date: 20040412
  Receipt Date: 20040401
  Transmission Date: 20050107
  Serious: Yes (Other)
  Sender: FDA-Public Use
  Company Number: 200412528US

PATIENT
  Age: 33 Year
  Sex: Male
  Weight: 136.4 kg

DRUGS (1)
  1. LOVENOX [Suspect]

REACTIONS (4)
  - CEREBROVASCULAR ACCIDENT [None]
  - HAEMORRHAGE [None]
  - POST PROCEDURAL COMPLICATION [None]
  - POST PROCEDURAL HAEMORRHAGE [None]
